FAERS Safety Report 9010873 (Version 1)
Quarter: 2013Q1

REPORT INFORMATION
  Report Type: Spontaneous
  Country: JP (occurrence: JP)
  Receive Date: 20130109
  Receipt Date: 20130109
  Transmission Date: 20140127
  Serious: Yes (Death)
  Sender: FDA-Public Use
  Company Number: JP-TEVA-378580ISR

PATIENT
  Age: 67 Year
  Sex: Female

DRUGS (8)
  1. PREDNISOLONE [Suspect]
     Indication: GRAFT VERSUS HOST DISEASE IN INTESTINE
     Route: 065
  2. CICLOSPORIN [Suspect]
     Indication: IMMUNOSUPPRESSANT DRUG THERAPY
     Route: 065
  3. TACROLIMUS [Suspect]
     Indication: PROPHYLAXIS AGAINST GRAFT VERSUS HOST DISEASE
     Route: 050
  4. TACROLIMUS [Suspect]
     Indication: GRAFT VERSUS HOST DISEASE IN INTESTINE
     Route: 065
  5. IMATINIB [Suspect]
     Route: 065
  6. DASATINIB [Suspect]
     Route: 065
  7. METHOTREXATE [Concomitant]
     Indication: PROPHYLAXIS AGAINST GRAFT VERSUS HOST DISEASE
     Dosage: ON DAY 1
     Route: 065
  8. METHOTREXATE [Concomitant]
     Indication: PROPHYLAXIS AGAINST GRAFT VERSUS HOST DISEASE
     Dosage: ON DAYS 3, 6, 11
     Route: 065

REACTIONS (6)
  - Acute graft versus host disease [Fatal]
  - Portal venous gas [Fatal]
  - Pneumatosis intestinalis [Fatal]
  - Septic shock [Fatal]
  - Drug ineffective [Fatal]
  - Pulmonary alveolar haemorrhage [Fatal]
